FAERS Safety Report 14676581 (Version 2)
Quarter: 2018Q2

REPORT INFORMATION
  Report Type: Spontaneous
  Country: TW (occurrence: TW)
  Receive Date: 20180324
  Receipt Date: 20180405
  Transmission Date: 20180711
  Serious: Yes (Death, Other)
  Sender: FDA-Public Use
  Company Number: TW-ROCHE-2090333

PATIENT
  Age: 76 Year
  Sex: Male
  Weight: 68 kg

DRUGS (6)
  1. IRINOTECAN HYDROCHLORIDE TRIHYDRATE [Suspect]
     Active Substance: IRINOTECAN HYDROCHLORIDE
     Indication: COLON CANCER
     Route: 041
     Dates: start: 20180305, end: 20180305
  2. GRANISETRON HYDROCHLORIDE. [Concomitant]
     Active Substance: GRANISETRON HYDROCHLORIDE
     Route: 041
     Dates: start: 20180305, end: 20180305
  3. AVASTIN [Suspect]
     Active Substance: BEVACIZUMAB
     Indication: COLON CANCER
     Route: 041
     Dates: start: 20150305
  4. BENAMINE [Concomitant]
     Route: 041
     Dates: start: 20180305, end: 20180305
  5. CALCIUM LEUCOVORIN [Suspect]
     Active Substance: LEUCOVORIN CALCIUM
     Indication: COLON CANCER
     Route: 041
     Dates: start: 20180305, end: 20180305
  6. DEXAMETHASONE PHOSPHATE SODIUM [Concomitant]
     Active Substance: DEXAMETHASONE SODIUM PHOSPHATE
     Route: 041
     Dates: start: 20180305, end: 20180305

REACTIONS (2)
  - Cardiac arrest [Fatal]
  - Dyspnoea [Unknown]

NARRATIVE: CASE EVENT DATE: 20180305
